FAERS Safety Report 5597841-4 (Version None)
Quarter: 2007Q4

REPORT INFORMATION
  Report Type: 
  Country: None (occurrence: None)
  Receive Date: 20071221
  Receipt Date: 20070406
  Transmission Date: 20080405
  Serious: Yes (Hospitalization)
  Sender: FDA-Public Use
  Company Number: US200703004976

PATIENT
  Sex: Female

DRUGS (6)
  1. HUMALOG PEN [Suspect]
     Indication: DIABETES MELLITUS
     Dosage: 5 U,  30 U UNKNOWN
     Dates: start: 20030101, end: 20070124
  2. HUMALOG PEN [Suspect]
     Indication: DIABETES MELLITUS
     Dosage: 5 U,  30 U UNKNOWN
     Dates: start: 20070124, end: 20070319
  3. HUMALOG PEN [Suspect]
  4. HUMULIN R [Suspect]
     Indication: DIABETES MELLITUS
     Dosage: UNK
  5. HUMULIN N [Suspect]
     Indication: DIABETES MELLITUS
     Dosage: UNK
  6. LANTUS [Concomitant]

REACTIONS (9)
  - BLOOD GLUCOSE DECREASED [None]
  - BLOOD GLUCOSE INCREASED [None]
  - CRYING [None]
  - DRUG INEFFECTIVE [None]
  - DRUG SPECIFIC ANTIBODY PRESENT [None]
  - KETONURIA [None]
  - MALAISE [None]
  - PHARYNGITIS [None]
  - PYREXIA [None]
